FAERS Safety Report 19476527 (Version 1)
Quarter: 2021Q2

REPORT INFORMATION
  Report Type: Report from Study
  Country: US (occurrence: US)
  Receive Date: 20210630
  Receipt Date: 20210630
  Transmission Date: 20210717
  Serious: Yes (Other)
  Sender: FDA-Public Use
  Company Number: US-AMGEN-USASL2021025303

PATIENT
  Age: 63 Year
  Sex: Female

DRUGS (3)
  1. REPATHA [Suspect]
     Active Substance: EVOLOCUMAB
     Indication: BLOOD CHOLESTEROL INCREASED
  2. REPATHA [Suspect]
     Active Substance: EVOLOCUMAB
     Indication: HYPERCHOLESTEROLAEMIA
     Dosage: 420 MILLIGRAM, QMO
     Route: 065
     Dates: start: 20210215, end: 2021
  3. REPATHA [Suspect]
     Active Substance: EVOLOCUMAB
     Indication: CORONARY ARTERY DISEASE

REACTIONS (28)
  - Asthma [Not Recovered/Not Resolved]
  - Cheilitis [Unknown]
  - Hypoaesthesia oral [Unknown]
  - Hypoaesthesia [Unknown]
  - Injection site haemorrhage [Unknown]
  - Gait disturbance [Unknown]
  - Feeling abnormal [Unknown]
  - Urinary retention [Unknown]
  - Pyrexia [Unknown]
  - Bladder pain [Unknown]
  - Injection site warmth [Unknown]
  - Joint swelling [Unknown]
  - Insomnia [Unknown]
  - Dysuria [Unknown]
  - Oral discomfort [Unknown]
  - Back pain [Unknown]
  - Pruritus [Unknown]
  - Injection site swelling [Unknown]
  - Injection site pruritus [Unknown]
  - Injection site induration [Unknown]
  - Skin ulcer [Not Recovered/Not Resolved]
  - Urine odour abnormal [Not Recovered/Not Resolved]
  - Ear pain [Unknown]
  - Injection site mass [Unknown]
  - Hypertension [Unknown]
  - Vulvovaginal swelling [Unknown]
  - Lip swelling [Unknown]
  - Nasopharyngitis [Unknown]

NARRATIVE: CASE EVENT DATE: 2021
